FAERS Safety Report 18742051 (Version 2)
Quarter: 2021Q1

REPORT INFORMATION
  Report Type: Report from Study
  Country: US (occurrence: US)
  Receive Date: 20210114
  Receipt Date: 20210122
  Transmission Date: 20210419
  Serious: Yes (Hospitalization)
  Sender: FDA-Public Use
  Company Number: US-BAYER-2021-015299

PATIENT
  Age: 79 Year
  Sex: Male

DRUGS (12)
  1. NUBEQA [Suspect]
     Active Substance: DAROLUTAMIDE
     Indication: HORMONE-REFRACTORY PROSTATE CANCER
     Dosage: 600 MG, BID (300 MG TABS ? TAKE TWO TABLETS TWICE DAILY)
     Route: 048
     Dates: start: 20201227
  2. VITAMINS NOS [Concomitant]
     Active Substance: VITAMINS
  3. GABAPENTIN. [Concomitant]
     Active Substance: GABAPENTIN
  4. XARELTO [Concomitant]
     Active Substance: RIVAROXABAN
  5. PREDNISONE. [Concomitant]
     Active Substance: PREDNISONE
  6. COQ10 [ASCORBIC ACID;BETACAROTENE;CUPRIC OXIDE;MANGANESE SULFATE;S [Concomitant]
     Active Substance: MINERALS\VITAMINS
  7. FLUOXETINE HYDROCHLORIDE. [Concomitant]
     Active Substance: FLUOXETINE HYDROCHLORIDE
  8. HYDROCODONE BITARTRATE. [Concomitant]
     Active Substance: HYDROCODONE BITARTRATE
  9. DRAMAMINE [Concomitant]
     Active Substance: DIMENHYDRINATE
  10. NUBEQA [Suspect]
     Active Substance: DAROLUTAMIDE
     Indication: HORMONE-REFRACTORY PROSTATE CANCER
  11. ZOLPIDEM TARTRATE. [Concomitant]
     Active Substance: ZOLPIDEM TARTRATE
  12. VITAMIN D3 [Concomitant]
     Active Substance: CHOLECALCIFEROL

REACTIONS (4)
  - Vomiting [Unknown]
  - Vertigo [Unknown]
  - Hospitalisation [Not Recovered/Not Resolved]
  - Confusional state [None]

NARRATIVE: CASE EVENT DATE: 20210104
